FAERS Safety Report 4436672-5 (Version None)
Quarter: 2004Q3

REPORT INFORMATION
  Report Type: 
  Country: None (occurrence: None)
  Receive Date: 20040728
  Receipt Date: 20031027
  Transmission Date: 20050211
  Serious: Yes (Hospitalization)
  Sender: FDA-Public Use
  Company Number: 203046

PATIENT
  Age: 65 Year
  Sex: Male

DRUGS (3)
  1. RITUXAN [Suspect]
     Indication: CHRONIC LYMPHOCYTIC LEUKAEMIA
     Dosage: INTRAVENOUS
     Route: 042
     Dates: start: 20031001, end: 20031001
  2. TYLENOL [Concomitant]
  3. BENADRYL [Concomitant]

REACTIONS (1)
  - PULSE ABSENT [None]
